FAERS Safety Report 22318591 (Version 6)
Quarter: 2024Q3

REPORT INFORMATION
  Report Type: Spontaneous
  Country: US (occurrence: US)
  Receive Date: 20230515
  Receipt Date: 20240712
  Transmission Date: 20241017
  Serious: No
  Sender: SANOFI AVENTIS
  Company Number: US-SA-SAC20230224001126

PATIENT
  Age: 69 Year
  Sex: Female

DRUGS (1)
  1. DUPIXENT [Suspect]
     Active Substance: DUPILUMAB
     Indication: Neurodermatitis
     Dosage: 300 MG, QOW
     Route: 058
     Dates: start: 202302

REACTIONS (8)
  - Fungal infection [Unknown]
  - Fall [Unknown]
  - Pruritus [Unknown]
  - Dry eye [Recovering/Resolving]
  - Ocular discomfort [Recovering/Resolving]
  - Incorrect product administration duration [Unknown]
  - Traumatic haemorrhage [Unknown]
  - Head injury [Unknown]

NARRATIVE: CASE EVENT DATE: 20230101
